FAERS Safety Report 13363504 (Version 1)
Quarter: 2017Q1

REPORT INFORMATION
  Report Type: Spontaneous
  Country: BR (occurrence: BR)
  Receive Date: 20170323
  Receipt Date: 20170323
  Transmission Date: 20170429
  Serious: Yes (Other)
  Sender: FDA-Public Use
  Company Number: BR-NODEN PHARMA DAC-NOD-2017-000044

PATIENT
  Sex: Male

DRUGS (1)
  1. RASILEZ [Suspect]
     Active Substance: ALISKIREN
     Indication: HYPERTENSION
     Dosage: UNK, FOR 5 YEARS
     Route: 065

REACTIONS (3)
  - Drug withdrawal headache [Unknown]
  - Hypertension [Unknown]
  - Pain [Unknown]
